FAERS Safety Report 7690824-X (Version None)
Quarter: 2011Q3

REPORT INFORMATION
  Report Type: 
  Country: None (occurrence: None)
  Receive Date: 20110812
  Receipt Date: 20110802
  Transmission Date: 20111222
  Serious: Yes (Other)
  Sender: FDA-Public Use
  Company Number: FK201101544

PATIENT
  Age: 71 Year
  Sex: Male

DRUGS (3)
  1. CISPLATIN [Suspect]
     Indication: BONE NEOPLASM MALIGNANT
     Dosage: 60 MG/M2, ON DAY 2
  2. FLUOROURACIL [Suspect]
     Indication: BONE NEOPLASM MALIGNANT
     Dosage: 700 MG/M2, OVER DAYS 1-5, INTRAVENOUS (NOT OTHERWISE SPECIFIED)
     Route: 042
  3. DOCETAXEL [Suspect]
     Indication: BONE NEOPLASM MALIGNANT
     Dosage: 50 MG/M2, INTRAVENOUS BOLUS
     Route: 040

REACTIONS (2)
  - ALANINE AMINOTRANSFERASE INCREASED [None]
  - LIVER DISORDER [None]
